FAERS Safety Report 16277566 (Version 1)
Quarter: 2019Q2

REPORT INFORMATION
  Report Type: Spontaneous
  Country: CA (occurrence: CA)
  Receive Date: 20190506
  Receipt Date: 20190506
  Transmission Date: 20190711
  Serious: Yes (Hospitalization)
  Sender: FDA-Public Use
  Company Number: CA-PFIZER INC-2019189341

PATIENT
  Age: 31 Year
  Sex: Female
  Weight: 104 kg

DRUGS (12)
  1. DEXILANT [Suspect]
     Active Substance: DEXLANSOPRAZOLE
     Indication: THROAT IRRITATION
     Dosage: UNK
     Route: 065
  2. SERTRALINE HCL [Suspect]
     Active Substance: SERTRALINE HYDROCHLORIDE
     Indication: ANXIETY
     Dosage: UNK
  3. DEXILANT [Suspect]
     Active Substance: DEXLANSOPRAZOLE
     Indication: OESOPHAGEAL IRRITATION
  4. DEXILANT [Suspect]
     Active Substance: DEXLANSOPRAZOLE
     Indication: EPIGASTRIC DISCOMFORT
  5. ALGINIC ACID;ALUMINIUM HYDROXIDE;MAGNESIUM TRISILICATE;SODIUM BICARBON [Suspect]
     Active Substance: ALGINIC ACID\ALUMINUM HYDROXIDE\MAGNESIUM TRISILICATE\SODIUM ALGINATE\SODIUM BICARBONATE
     Indication: THROAT IRRITATION
     Dosage: UNK
     Route: 065
  6. DEXILANT [Suspect]
     Active Substance: DEXLANSOPRAZOLE
     Indication: THROAT IRRITATION
     Dosage: UNK
  7. ALGINIC ACID;ALUMINIUM HYDROXIDE;MAGNESIUM TRISILICATE;SODIUM BICARBON [Suspect]
     Active Substance: ALGINIC ACID\ALUMINUM HYDROXIDE\MAGNESIUM TRISILICATE\SODIUM ALGINATE\SODIUM BICARBONATE
     Indication: OESOPHAGEAL IRRITATION
  8. CALCIUM CARBONATE/MAGNESIUM CARBONATE/MAGNESIUM TRISILICATE [Suspect]
     Active Substance: CALCIUM CARBONATE\MAGNESIUM CARBONATE\MAGNESIUM TRISILICATE
     Indication: OESOPHAGEAL IRRITATION
  9. DEXILANT [Suspect]
     Active Substance: DEXLANSOPRAZOLE
     Indication: OESOPHAGEAL IRRITATION
     Dosage: UNK
  10. DEXILANT [Suspect]
     Active Substance: DEXLANSOPRAZOLE
     Indication: EPIGASTRIC DISCOMFORT
  11. SERTRALINE HCL [Suspect]
     Active Substance: SERTRALINE HYDROCHLORIDE
     Indication: DEPRESSION
     Dosage: 100 MG, 1X/DAY
     Route: 048
  12. CALCIUM CARBONATE/MAGNESIUM CARBONATE/MAGNESIUM TRISILICATE [Suspect]
     Active Substance: CALCIUM CARBONATE\MAGNESIUM CARBONATE\MAGNESIUM TRISILICATE
     Indication: THROAT IRRITATION
     Dosage: UNK
     Route: 065

REACTIONS (2)
  - Drug ineffective [Recovered/Resolved]
  - Condition aggravated [Recovered/Resolved]
